FAERS Safety Report 17836156 (Version 1)
Quarter: 2020Q2

REPORT INFORMATION
  Report Type: Report from Study
  Country: US (occurrence: US)
  Receive Date: 20200528
  Receipt Date: 20200528
  Transmission Date: 20200714
  Serious: Yes (Other)
  Sender: FDA-Public Use
  Company Number: US-GILEAD-2020-0468397

PATIENT
  Age: 70 Year
  Sex: Male

DRUGS (2)
  1. FASENRA [Concomitant]
     Active Substance: BENRALIZUMAB
     Dosage: INJECT 1 PEN (30 MG) UNDER THE SKIN AT WEEK 8 THEN EVERY 8 WEEKS THEREAFTER
  2. AZTREONAM LYSINE [Suspect]
     Active Substance: AZTREONAM LYSINE
     Indication: PRODUCT USED FOR UNKNOWN INDICATION
     Dosage: 1 VIAL BY ALTERA NEBULIZER 3 (THREE) TIMES DAILY. ON FOR 28 DAYS, OFF FOR 28 DAYS
     Route: 055

REACTIONS (7)
  - Decreased activity [Unknown]
  - Wheezing [Unknown]
  - Drug ineffective [Unknown]
  - Cough [Unknown]
  - Dyspnoea [Unknown]
  - Pneumonia [Not Recovered/Not Resolved]
  - Chest discomfort [Unknown]
